FAERS Safety Report 9547633 (Version 1)
Quarter: 2013Q2

REPORT INFORMATION
  Report Type: Spontaneous
  Country: US (occurrence: None)
  Receive Date: 20130606
  Receipt Date: 20130606
  Transmission Date: 20140414
  Serious: No
  Sender: FDA-Public Use
  Company Number: 163-POMAL-13043396

PATIENT
  Age: 72 Year
  Sex: Male
  Weight: 93.44 kg

DRUGS (10)
  1. POMALYST [Suspect]
     Indication: PLASMA CELL MYELOMA
     Route: 048
     Dates: start: 20130402
  2. ALLOPURINOL [Concomitant]
  3. BABY ASPIRIN (ACETYLSALICYLIC ACID) [Concomitant]
  4. DEXAMETHASONE [Concomitant]
  5. FUROSEMIDE [Concomitant]
  6. KLOR-CON M10 (POTASSIUM CHLORIDE) [Concomitant]
  7. PANTOPRAZOLE SODIUM [Concomitant]
  8. PROCHLORPERAZINE [Concomitant]
  9. ROPINIROLE HCL (ROPINIROLE HYDROCHLORIDE) [Concomitant]
  10. TAMSULOSIN HCL (TAMSULOSIN HYDROCHLORIDE) [Concomitant]

REACTIONS (1)
  - Fatigue [None]
